FAERS Safety Report 5757848-0 (Version None)
Quarter: 2008Q2

REPORT INFORMATION
  Report Type: 
  Country: None (occurrence: None)
  Receive Date: 20080603
  Receipt Date: 20080528
  Transmission Date: 20081010
  Serious: Yes (Death, Hospitalization)
  Sender: FDA-Public Use
  Company Number: PHHY2008TR05958

PATIENT
  Sex: Male

DRUGS (8)
  1. LAMISIL [Suspect]
     Indication: ONYCHOMYCOSIS
     Dosage: 250 MG, QD
     Route: 048
     Dates: start: 20080101, end: 20080201
  2. PERINDOPRIL ERBUMINE [Concomitant]
  3. MONODUR [Concomitant]
  4. BELOC ZOK [Concomitant]
  5. CORASPIN [Concomitant]
  6. METFORMIN HYDROCHLORIDE [Concomitant]
  7. PIOGLITAZON [Concomitant]
  8. BENCYCLANE FUMARATE [Concomitant]

REACTIONS (15)
  - ASTHENIA [None]
  - BALANCE DISORDER [None]
  - CHROMATURIA [None]
  - DIZZINESS [None]
  - FATIGUE [None]
  - HEPATIC CIRRHOSIS [None]
  - HEPATIC ENCEPHALOPATHY [None]
  - HEPATITIS TOXIC [None]
  - HEPATOMEGALY [None]
  - JAUNDICE [None]
  - LIVER TRANSPLANT [None]
  - OCULAR ICTERUS [None]
  - OEDEMA PERIPHERAL [None]
  - SPLENOMEGALY [None]
  - VENOUS STASIS [None]
